FAERS Safety Report 9460675 (Version 1)
Quarter: 2013Q3

REPORT INFORMATION
  Report Type: Spontaneous
  Country: US (occurrence: US)
  Receive Date: 20130815
  Receipt Date: 20130815
  Transmission Date: 20140515
  Serious: Yes (Other)
  Sender: FDA-Public Use
  Company Number: US-RB-057068-13

PATIENT
  Age: 63 Year
  Sex: Female

DRUGS (3)
  1. SUBOXONE FILM [Suspect]
     Indication: DRUG DEPENDENCE
     Dosage: SUBOXONE FILM; PRESCRIBED DOSES RANGED FROM 2-8 MG/DAILY
     Route: 060
     Dates: start: 2010, end: 2013
  2. SUBOXONE FILM [Suspect]
     Dosage: SUBOXONE FILM; SELF-TAPERING, ACHIEVED VARIOUS DOWNWARDLY DOSES
     Route: 060
     Dates: start: 2013, end: 201306
  3. XANAX [Concomitant]
     Indication: ANXIETY
     Dosage: 1 MG - 1.5 MG PER DAY USING AS NEEDED
     Route: 048

REACTIONS (7)
  - Fall [Recovered/Resolved]
  - Nervousness [Recovered/Resolved]
  - Wrist fracture [Recovered/Resolved]
  - Wrong technique in drug usage process [Recovered/Resolved]
  - Underdose [Recovered/Resolved]
  - Drug ineffective [Recovered/Resolved]
  - Psychomotor hyperactivity [Recovered/Resolved]
